FAERS Safety Report 13177562 (Version 1)
Quarter: 2017Q1

REPORT INFORMATION
  Report Type: Report from Study
  Country: US (occurrence: US)
  Receive Date: 20170201
  Receipt Date: 20170201
  Transmission Date: 20170428
  Serious: No
  Sender: FDA-Public Use
  Company Number: US-EXELIXIS-CABO-16006535

PATIENT
  Sex: Male

DRUGS (4)
  1. OPDIVO [Concomitant]
     Active Substance: NIVOLUMAB
  2. XGEVA [Concomitant]
     Active Substance: DENOSUMAB
  3. COMETRIQ [Suspect]
     Active Substance: CABOZANTINIB S-MALATE
     Indication: RENAL CANCER
     Dosage: 60 MG, QD
     Route: 048
     Dates: start: 20160419
  4. COMETRIQ [Suspect]
     Active Substance: CABOZANTINIB S-MALATE
     Dosage: 40 MG, QD
     Route: 048
     Dates: start: 20160818

REACTIONS (10)
  - Feeding disorder [Unknown]
  - Dyspepsia [Unknown]
  - Diarrhoea [Unknown]
  - Faeces hard [Unknown]
  - Constipation [Not Recovered/Not Resolved]
  - Nausea [Unknown]
  - Vomiting [Unknown]
  - Weight decreased [Unknown]
  - Oral pain [Recovered/Resolved]
  - Off label use [Unknown]
